FAERS Safety Report 9892238 (Version 2)
Quarter: 2014Q1

REPORT INFORMATION
  Report Type: Spontaneous
  Country: US (occurrence: US)
  Receive Date: 20140212
  Receipt Date: 20140212
  Transmission Date: 20141002
  Serious: No
  Sender: FDA-Public Use
  Company Number: US-MALLINCKRODT-T201304977

PATIENT
  Age: 56 Year
  Sex: Female
  Weight: 78.91 kg

DRUGS (13)
  1. FENTANYL TRANSDERMAL SYSTEM [Suspect]
     Indication: PAIN
     Dosage: 25 MCG/HR, Q 72 HRS
     Route: 062
     Dates: start: 20131116
  2. FENTANYL TRANSDERMAL SYSTEM [Suspect]
     Dosage: 50 MCG/HR, Q 72 HRS
  3. BACLOFEN [Concomitant]
     Indication: MUSCLE RELAXANT THERAPY
     Dosage: 60 MG, QD
     Route: 048
  4. ASPIRIN [Concomitant]
     Indication: CARDIOVASCULAR EVENT PROPHYLAXIS
     Dosage: 81 MG, QD
     Route: 048
  5. ZETIA [Concomitant]
     Indication: BLOOD CHOLESTEROL INCREASED
     Dosage: 10 MG, QD
     Route: 048
  6. MORPHINE [Concomitant]
     Indication: PAIN
     Dosage: 4 ML, QD
     Route: 048
     Dates: start: 201311
  7. RITALIN [Concomitant]
     Indication: PRODUCT USED FOR UNKNOWN INDICATION
     Dosage: 30 MG, QD
     Route: 048
  8. IMIPRAMINE [Concomitant]
     Indication: SLEEP DISORDER
     Dosage: 75 MG, QD
     Route: 048
  9. IMIPRAMINE [Concomitant]
     Indication: DEPRESSION
  10. SINGULAIR [Concomitant]
     Indication: DEPRESSION
     Dosage: 10 MG, QD
     Route: 048
  11. CRESTOR [Concomitant]
     Indication: BLOOD CHOLESTEROL INCREASED
     Dosage: 10 MG, QD
     Route: 048
  12. TENORMIN [Concomitant]
     Indication: HYPERTENSION
     Dosage: 25 MG, QD
     Route: 048
  13. LASIX                              /00032601/ [Concomitant]
     Indication: OEDEMA
     Dosage: 20 MG, BID
     Route: 048

REACTIONS (4)
  - Oedema [Recovered/Resolved]
  - Weight increased [Recovered/Resolved]
  - Local swelling [Recovered/Resolved]
  - Nausea [Recovered/Resolved]
